FAERS Safety Report 21489183 (Version 1)
Quarter: 2022Q4

REPORT INFORMATION
  Report Type: Spontaneous
  Country: US (occurrence: US)
  Receive Date: 20221021
  Receipt Date: 20221021
  Transmission Date: 20230113
  Serious: Yes (Hospitalization)
  Sender: FDA-Public Use
  Company Number: US-QILU PHARMACEUTICAL CO.LTD.-QLU-000082-2022

PATIENT
  Age: 74 Year
  Sex: Male

DRUGS (5)
  1. CEFAZOLIN [Suspect]
     Active Substance: CEFAZOLIN
     Indication: Osteomyelitis
     Dosage: 2 GRAM, EVERY 12 HOURS
     Route: 042
  2. CEFAZOLIN [Suspect]
     Active Substance: CEFAZOLIN
     Indication: Diabetic foot infection
     Dosage: 4 GRAM FOR 2 DOSES, ON DAY 24, AFTER DISCHARGE
     Route: 042
  3. APIXABAN [Concomitant]
     Active Substance: APIXABAN
     Indication: Anticoagulant therapy
     Dosage: 5 MILLIGRAM, BID
     Route: 048
  4. VANCOMYCIN [Concomitant]
     Active Substance: VANCOMYCIN
     Indication: Osteomyelitis
     Dosage: UNK, ON DAY 5
     Route: 042
  5. CEFEPIME [Concomitant]
     Active Substance: CEFEPIME HYDROCHLORIDE
     Indication: Osteomyelitis
     Dosage: UNK, ON DAY 5
     Route: 042

REACTIONS (6)
  - Coagulopathy [Recovered/Resolved]
  - International normalised ratio increased [Recovered/Resolved]
  - Prothrombin time prolonged [Recovered/Resolved]
  - Activated partial thromboplastin time prolonged [Recovered/Resolved]
  - Catheter site haemorrhage [Recovered/Resolved]
  - Extra dose administered [Recovered/Resolved]
